FAERS Safety Report 8334385-0 (Version None)
Quarter: 2012Q2

REPORT INFORMATION
  Report Type: 
  Country: None (occurrence: None)
  Receive Date: 20120503
  Receipt Date: 20110311
  Transmission Date: 20120825
  Serious: Yes (Other)
  Sender: FDA-Public Use
  Company Number: US-TEVA-2011001167

PATIENT
  Sex: Male
  Weight: 122.58 kg

DRUGS (5)
  1. NUVIGIL [Suspect]
     Indication: SLEEP APNOEA SYNDROME
  2. GLIPIZIDE AND METFORMIN HCL [Concomitant]
     Dates: start: 20100101
  3. ATENOLOL [Concomitant]
     Dates: start: 20070101
  4. NUVIGIL [Suspect]
     Indication: NARCOLEPSY
     Dosage: 150 MILLIGRAM;
     Route: 048
     Dates: start: 20110311
  5. CYMBALTA [Concomitant]
     Dates: start: 20090101

REACTIONS (6)
  - ABDOMINAL DISCOMFORT [None]
  - DRUG INEFFECTIVE [None]
  - DIARRHOEA [None]
  - ABDOMINAL PAIN UPPER [None]
  - THIRST [None]
  - HEADACHE [None]
